FAERS Safety Report 8859299 (Version 1)
Quarter: 2012Q4

REPORT INFORMATION
  Report Type: 
  Country: US (occurrence: US)
  Receive Date: 20121024
  Receipt Date: 20121024
  Transmission Date: 20130627
  Serious: No
  Sender: FDA-Public Use
  Company Number: US-ASTRAZENECA-2012SE17177

PATIENT
  Age: 72 Year
  Sex: Female

DRUGS (4)
  1. TOPROL XL [Suspect]
     Route: 048
  2. TOPROL XL [Suspect]
     Route: 048
  3. TOPROL XL [Suspect]
     Dosage: GENERIC
     Route: 048
  4. WARFARIN [Concomitant]

REACTIONS (4)
  - Dehydration [Unknown]
  - Alopecia [Unknown]
  - Onychomadesis [Unknown]
  - Malaise [Unknown]
